FAERS Safety Report 8992970 (Version 7)
Quarter: 2015Q4

REPORT INFORMATION
  Report Type: Report from Study
  Country: JP (occurrence: JP)
  Receive Date: 20130102
  Receipt Date: 20151228
  Transmission Date: 20160305
  Serious: Yes (Hospitalization, Other)
  Sender: FDA-Public Use
  Company Number: JP-JNJFOC-20120104825

PATIENT
  Age: 38 Year
  Sex: Male
  Weight: 63 kg

DRUGS (40)
  1. TRUVADA [Suspect]
     Active Substance: EMTRICITABINE\TENOFOVIR DISOPROXIL FUMARATE
     Indication: HIV INFECTION
     Route: 048
     Dates: start: 20090127
  2. CROSS EIGHT M [Concomitant]
     Active Substance: ANTIHEMOPHILIC FACTOR HUMAN
     Indication: FACTOR VIII DEFICIENCY
     Route: 042
     Dates: start: 20111201
  3. CROSS EIGHT M [Concomitant]
     Active Substance: ANTIHEMOPHILIC FACTOR HUMAN
     Indication: FACTOR VIII DEFICIENCY
     Route: 042
     Dates: start: 20100401, end: 20110630
  4. MIRTAZAPINE. [Concomitant]
     Active Substance: MIRTAZAPINE
     Indication: ADJUSTMENT DISORDER
     Route: 048
     Dates: start: 20140410
  5. PREZISTA [Suspect]
     Active Substance: DARUNAVIR ETHANOLATE
     Indication: HIV INFECTION
     Route: 048
     Dates: start: 20110426, end: 20140908
  6. NORVIR [Suspect]
     Active Substance: RITONAVIR
     Indication: HIV INFECTION
     Route: 048
     Dates: start: 20110712, end: 20140908
  7. CROSS EIGHT M [Concomitant]
     Active Substance: ANTIHEMOPHILIC FACTOR HUMAN
     Indication: FACTOR VIII DEFICIENCY
     Route: 042
     Dates: start: 20120401, end: 20121026
  8. CROSS EIGHT M [Concomitant]
     Active Substance: ANTIHEMOPHILIC FACTOR HUMAN
     Indication: FACTOR VIII DEFICIENCY
     Route: 042
     Dates: start: 20111116, end: 20111130
  9. MIRTAZAPINE. [Concomitant]
     Active Substance: MIRTAZAPINE
     Indication: ADJUSTMENT DISORDER
     Route: 048
     Dates: start: 20110301, end: 20110315
  10. MIRTAZAPINE. [Concomitant]
     Active Substance: MIRTAZAPINE
     Indication: DEPRESSION
     Route: 048
     Dates: start: 20140410
  11. LANDSEN [Concomitant]
     Active Substance: CLONAZEPAM
     Indication: ADJUSTMENT DISORDER
     Route: 048
     Dates: start: 20110301, end: 20110405
  12. LANDSEN [Concomitant]
     Active Substance: CLONAZEPAM
     Indication: ADJUSTMENT DISORDER
     Route: 048
     Dates: start: 20110406, end: 20121001
  13. DOLUTEGRAVIR SODIUM [Concomitant]
     Active Substance: DOLUTEGRAVIR SODIUM
     Indication: HIV INFECTION
     Route: 048
     Dates: start: 20140909
  14. PREZISTA [Suspect]
     Active Substance: DARUNAVIR ETHANOLATE
     Indication: HIV INFECTION
     Route: 048
     Dates: start: 20090519, end: 20110425
  15. CROSS EIGHT M [Concomitant]
     Active Substance: ANTIHEMOPHILIC FACTOR HUMAN
     Indication: FACTOR VIII DEFICIENCY
     Route: 042
     Dates: start: 20111102, end: 20111107
  16. CROSS EIGHT M [Concomitant]
     Active Substance: ANTIHEMOPHILIC FACTOR HUMAN
     Indication: FACTOR VIII DEFICIENCY
     Route: 042
     Dates: start: 20111108, end: 20111115
  17. CROSS EIGHT M [Concomitant]
     Active Substance: ANTIHEMOPHILIC FACTOR HUMAN
     Indication: FACTOR VIII DEFICIENCY
     Route: 042
     Dates: start: 20121128, end: 20140401
  18. LANDSEN [Concomitant]
     Active Substance: CLONAZEPAM
     Indication: ADJUSTMENT DISORDER
     Route: 048
     Dates: start: 20131028, end: 20140409
  19. PREZISTA [Suspect]
     Active Substance: DARUNAVIR ETHANOLATE
     Indication: HIV INFECTION
     Route: 048
     Dates: start: 20140311
  20. CROSS EIGHT M [Concomitant]
     Active Substance: ANTIHEMOPHILIC FACTOR HUMAN
     Indication: HAEMARTHROSIS
     Route: 042
     Dates: start: 20111116, end: 20111130
  21. LANDSEN [Concomitant]
     Active Substance: CLONAZEPAM
     Indication: DEPRESSION
     Route: 048
     Dates: start: 20110406, end: 20121001
  22. CROSS EIGHT M [Concomitant]
     Active Substance: ANTIHEMOPHILIC FACTOR HUMAN
     Indication: HAEMARTHROSIS
     Route: 042
     Dates: start: 20121128, end: 20140401
  23. CROSS EIGHT M [Concomitant]
     Active Substance: ANTIHEMOPHILIC FACTOR HUMAN
     Indication: HAEMARTHROSIS
     Dosage: 100-2000 IU PER DAY
     Route: 042
     Dates: start: 20110701, end: 20111101
  24. CROSS EIGHT M [Concomitant]
     Active Substance: ANTIHEMOPHILIC FACTOR HUMAN
     Indication: FACTOR VIII DEFICIENCY
     Dosage: 100-2000 IU PER DAY
     Route: 042
     Dates: start: 20110701, end: 20111101
  25. CROSS EIGHT M [Concomitant]
     Active Substance: ANTIHEMOPHILIC FACTOR HUMAN
     Indication: HAEMARTHROSIS
     Route: 042
     Dates: start: 20111108, end: 20111115
  26. MIRTAZAPINE. [Concomitant]
     Active Substance: MIRTAZAPINE
     Indication: ADJUSTMENT DISORDER
     Route: 048
     Dates: start: 20110316, end: 20140409
  27. MIRTAZAPINE. [Concomitant]
     Active Substance: MIRTAZAPINE
     Indication: DEPRESSION
     Route: 048
     Dates: start: 20110316, end: 20140409
  28. MIRTAZAPINE. [Concomitant]
     Active Substance: MIRTAZAPINE
     Indication: DEPRESSION
     Route: 048
     Dates: start: 20110301, end: 20110315
  29. LANDSEN [Concomitant]
     Active Substance: CLONAZEPAM
     Indication: DEPRESSION
     Route: 048
     Dates: start: 20110301, end: 20110405
  30. CROSS EIGHT MC [Concomitant]
     Indication: FACTOR VIII DEFICIENCY
     Dosage: 1000 IU X 10 PER 1 MONTH
     Route: 042
     Dates: start: 20140402
  31. CROSS EIGHT M [Concomitant]
     Active Substance: ANTIHEMOPHILIC FACTOR HUMAN
     Indication: HAEMARTHROSIS
     Route: 042
     Dates: start: 20100401, end: 20110630
  32. CROSS EIGHT M [Concomitant]
     Active Substance: ANTIHEMOPHILIC FACTOR HUMAN
     Indication: HAEMARTHROSIS
     Route: 042
     Dates: start: 20120401, end: 20121026
  33. CROSS EIGHT M [Concomitant]
     Active Substance: ANTIHEMOPHILIC FACTOR HUMAN
     Indication: HAEMARTHROSIS
     Route: 042
     Dates: start: 20121027, end: 20121127
  34. CROSS EIGHT M [Concomitant]
     Active Substance: ANTIHEMOPHILIC FACTOR HUMAN
     Indication: FACTOR VIII DEFICIENCY
     Route: 042
     Dates: start: 20121027, end: 20121127
  35. NORVIR [Suspect]
     Active Substance: RITONAVIR
     Indication: HIV INFECTION
     Route: 048
     Dates: start: 20090519, end: 20110711
  36. CROSS EIGHT M [Concomitant]
     Active Substance: ANTIHEMOPHILIC FACTOR HUMAN
     Indication: HAEMARTHROSIS
     Route: 042
     Dates: start: 20111102, end: 20111107
  37. CROSS EIGHT M [Concomitant]
     Active Substance: ANTIHEMOPHILIC FACTOR HUMAN
     Indication: HAEMARTHROSIS
     Route: 042
     Dates: start: 20111201
  38. MILTAX [Concomitant]
     Active Substance: VIDARABINE
     Indication: FACTOR VIII DEFICIENCY
     Route: 061
     Dates: start: 20100401, end: 20130331
  39. URSO [Concomitant]
     Active Substance: URSODIOL
     Indication: LIVER FUNCTION TEST ABNORMAL
     Route: 048
     Dates: start: 20100401
  40. LANDSEN [Concomitant]
     Active Substance: CLONAZEPAM
     Indication: DEPRESSION
     Route: 048
     Dates: start: 20131028, end: 20140409

REACTIONS (11)
  - Platelet count decreased [Not Recovered/Not Resolved]
  - Sensory disturbance [Not Recovered/Not Resolved]
  - Haemarthrosis [Recovering/Resolving]
  - Abdominal pain upper [Recovered/Resolved]
  - Fall [Unknown]
  - Intercostal neuralgia [Unknown]
  - Splenic injury [Recovering/Resolving]
  - Adjustment disorder [Not Recovered/Not Resolved]
  - Liver function test abnormal [Recovering/Resolving]
  - Faeces discoloured [Unknown]
  - Headache [Not Recovered/Not Resolved]

NARRATIVE: CASE EVENT DATE: 20100810
